FAERS Safety Report 16276132 (Version 1)
Quarter: 2019Q2

REPORT INFORMATION
  Report Type: Spontaneous
  Country: US (occurrence: US)
  Receive Date: 20190504
  Receipt Date: 20190504
  Transmission Date: 20190711
  Serious: Yes (Other)
  Sender: FDA-Public Use
  Company Number: None

PATIENT
  Age: 70 Year
  Sex: Male
  Weight: 70.2 kg

DRUGS (25)
  1. XIFAXAN [Concomitant]
     Active Substance: RIFAXIMIN
  2. VIT. D [Concomitant]
  3. LIALDA [Concomitant]
     Active Substance: MESALAMINE
  4. SINUS/ALLERGY [Concomitant]
  5. VITAMIN C [Concomitant]
     Active Substance: ASCORBIC ACID
  6. GLUTAMINE [Concomitant]
     Active Substance: GLUTAMINE
  7. ALOSETRON HCL [Suspect]
     Active Substance: ALOSETRON HYDROCHLORIDE
     Indication: INFLAMMATORY BOWEL DISEASE
     Dosage: ?          QUANTITY:1 TABLET(S);?
     Route: 048
     Dates: start: 20190416, end: 20190420
  8. OMEPRAZOLE. [Concomitant]
     Active Substance: OMEPRAZOLE
  9. CALCIUM/MAGNESIUM/ZINC [Concomitant]
  10. CRANBERRY CONC. [Concomitant]
  11. L-TYROSINE [Concomitant]
     Active Substance: TYROSINE
  12. PURINETHOL [Concomitant]
     Active Substance: MERCAPTOPURINE
  13. FISH OIL [Concomitant]
     Active Substance: FISH OIL
  14. MULTIVITAMIN/MINERAL [Concomitant]
  15. BETA CAROTENE [Concomitant]
  16. LORAZEPAM. [Concomitant]
     Active Substance: LORAZEPAM
  17. TINCTURE OF OPIUM [Concomitant]
     Active Substance: OPIUM
  18. VITAMIN B COMPLEX [Concomitant]
     Active Substance: CYANOCOBALAMIN\DEXPANTHENOL\NIACINAMIDE\PYRIDOXINE HYDROCHLORIDE\RIBOFLAVIN 5^-PHOSPHATE SODIUM\THIAMINE HYDROCHLORIDE\VITAMIN B COMPLEX
  19. CLIDINIUM [Concomitant]
     Active Substance: CLIDINIUM
  20. PROBIOTIC [Concomitant]
     Active Substance: PROBIOTICS NOS
  21. TYLENOL [Concomitant]
     Active Substance: ACETAMINOPHEN
  22. VIT. K2 [Concomitant]
  23. CHLORDIAZEPAM. [Concomitant]
     Active Substance: CHLORDIAZEPAM
  24. BLACK CHERRY CONC. [Concomitant]
  25. GINKO BILOBA [Concomitant]
     Active Substance: GINKGO

REACTIONS (2)
  - Hypoaesthesia [None]
  - Dizziness [None]

NARRATIVE: CASE EVENT DATE: 20190419
